FAERS Safety Report 6105462-X (Version None)
Quarter: 2009Q1

REPORT INFORMATION
  Report Type: 
  Country: None (occurrence: None)
  Receive Date: 20090306
  Receipt Date: 20090303
  Transmission Date: 20090719
  Serious: Yes (Hospitalization)
  Sender: FDA-Public Use
  Company Number: A0761772A

PATIENT
  Age: 83 Year
  Sex: Female
  Weight: 76.2 kg

DRUGS (4)
  1. MELPHALAN [Suspect]
     Indication: MULTIPLE MYELOMA
     Dosage: 16MG UNKNOWN
     Route: 048
  2. VELCADE [Suspect]
     Indication: MULTIPLE MYELOMA
     Dosage: 1.3MGM2 TWO TIMES PER WEEK
     Route: 040
     Dates: start: 20081112
  3. PREDNISONE [Suspect]
     Indication: MULTIPLE MYELOMA
     Dosage: 100MG UNKNOWN
     Route: 048
  4. NO CONCURRENT MEDICATIONS [Concomitant]

REACTIONS (2)
  - ANAEMIA [None]
  - ATRIAL FIBRILLATION [None]
